FAERS Safety Report 12037579 (Version 1)
Quarter: 2016Q1

REPORT INFORMATION
  Report Type: Spontaneous
  Country: US (occurrence: None)
  Receive Date: 20160205
  Receipt Date: 20160205
  Transmission Date: 20160526
  Serious: No
  Sender: FDA-Public Use
  Company Number: None

PATIENT
  Age: 72 Year
  Sex: Female

DRUGS (1)
  1. VOTRIENT [Suspect]
     Active Substance: PAZOPANIB HYDROCHLORIDE
     Indication: BREAST CANCER
     Route: 048
     Dates: start: 20150819

REACTIONS (3)
  - Transient ischaemic attack [None]
  - Myalgia [None]
  - Blood pressure increased [None]

NARRATIVE: CASE EVENT DATE: 20160201
